FAERS Safety Report 21662688 (Version 1)
Quarter: 2022Q4

REPORT INFORMATION
  Report Type: Report from Study
  Country: CN (occurrence: CN)
  Receive Date: 20221130
  Receipt Date: 20221130
  Transmission Date: 20230113
  Serious: Yes (Life-Threatening, Other)
  Sender: FDA-Public Use
  Company Number: CN-PFIZER INC-PV202200111467

PATIENT

DRUGS (7)
  1. METHOTREXATE SODIUM [Suspect]
     Active Substance: METHOTREXATE SODIUM
     Indication: Gestational trophoblastic tumour
     Dosage: DAY 1,  INTRAVENOUS BOLUS
     Route: 042
  2. METHOTREXATE SODIUM [Suspect]
     Active Substance: METHOTREXATE SODIUM
     Dosage: DAY 1, INTRAVENOUS INFUSION FOR 12 H
     Route: 042
  3. ETOPOSIDE [Suspect]
     Active Substance: ETOPOSIDE
     Indication: Gestational trophoblastic tumour
     Dosage: 100 MG/M2, INTRAVENOUS INFUSION FOR 1 H (DAY 1)
     Route: 042
  4. ACTINOMYCIN D [Suspect]
     Active Substance: DACTINOMYCIN
     Indication: Gestational trophoblastic tumour
     Dosage: 0.5 MG, INTRAVENOUS INFUSION FOR 1 H (DAY 1)
     Route: 042
  5. ACTINOMYCIN D [Suspect]
     Active Substance: DACTINOMYCIN
     Dosage: 0.5 MG, INTRAVENOUS INFUSION FOR 1 H (DAY 1)
     Route: 042
  6. CYCLOPHOSPHAMIDE [Suspect]
     Active Substance: CYCLOPHOSPHAMIDE
     Indication: Gestational trophoblastic tumour
     Dosage: 600 MG/M2, INTRAVENOUS INFUSION FOR 2 H (DAY 8)
     Route: 042
  7. VINCRISTINE [Suspect]
     Active Substance: VINCRISTINE
     Indication: Gestational trophoblastic tumour
     Dosage: 2 MG, NTRAVENOUS INFUSION, 3 H BEFORE CYCLOPHOSPHAMIDE (DAY 8)
     Route: 042

REACTIONS (1)
  - Liver injury [Unknown]
